FAERS Safety Report 16853461 (Version 2)
Quarter: 2020Q1

REPORT INFORMATION
  Report Type: Spontaneous
  Country: US (occurrence: US)
  Receive Date: 20190925
  Receipt Date: 20200225
  Transmission Date: 20200409
  Serious: No
  Sender: FDA-Public Use
  Company Number: US-CELGENEUS-USA-20190906225

PATIENT
  Age: 46 Year
  Sex: Female
  Weight: 84 kg

DRUGS (6)
  1. LINZESS [Concomitant]
     Active Substance: LINACLOTIDE
     Indication: PRODUCT USED FOR UNKNOWN INDICATION
     Route: 065
  2. OTEZLA [Suspect]
     Active Substance: APREMILAST
     Indication: PSORIASIS
     Dosage: 60 MILLIGRAM
     Route: 048
     Dates: start: 20190913
  3. OTEZLA [Suspect]
     Active Substance: APREMILAST
     Indication: PSORIATIC ARTHROPATHY
  4. ZYRTEC [Concomitant]
     Active Substance: CETIRIZINE HYDROCHLORIDE
     Indication: PRODUCT USED FOR UNKNOWN INDICATION
     Route: 065
  5. VIMOVO [Concomitant]
     Active Substance: ESOMEPRAZOLE MAGNESIUM\NAPROXEN
     Indication: PRODUCT USED FOR UNKNOWN INDICATION
     Route: 065
  6. METHOTREXATE. [Concomitant]
     Active Substance: METHOTREXATE
     Indication: PRODUCT USED FOR UNKNOWN INDICATION
     Route: 065

REACTIONS (5)
  - Nausea [Not Recovered/Not Resolved]
  - Headache [Not Recovered/Not Resolved]
  - Head discomfort [Not Recovered/Not Resolved]
  - Unevaluable event [Unknown]
  - Rhinorrhoea [Not Recovered/Not Resolved]

NARRATIVE: CASE EVENT DATE: 20190913
